FAERS Safety Report 21447917 (Version 2)
Quarter: 2023Q1

REPORT INFORMATION
  Report Type: Spontaneous
  Country: US (occurrence: US)
  Receive Date: 20221012
  Receipt Date: 20230102
  Transmission Date: 20230417
  Serious: Yes (Hospitalization, Other)
  Sender: FDA-Public Use
  Company Number: US-SA-SAC20221012000127

PATIENT
  Age: 63 Year
  Sex: Female
  Weight: 108 kg

DRUGS (6)
  1. DUPIXENT [Suspect]
     Active Substance: DUPILUMAB
     Indication: Dermatitis atopic
     Dosage: 300 MG, QOW
     Route: 058
     Dates: start: 202010
  2. FESOTERODINE FUMARATE [Concomitant]
     Active Substance: FESOTERODINE FUMARATE
     Dosage: UNK
  3. PANTOPRAZOLE SODIUM [Concomitant]
     Active Substance: PANTOPRAZOLE SODIUM
     Dosage: 20 MG
  4. HYDROCHLOROTHIAZIDE [Concomitant]
     Active Substance: HYDROCHLOROTHIAZIDE
     Dosage: 12.5 MG
  5. GABAPENTIN [Concomitant]
     Active Substance: GABAPENTIN
     Dosage: 600 MG
  6. POTASSIUM [Concomitant]
     Active Substance: POTASSIUM
     Dosage: UNK

REACTIONS (6)
  - Cellulitis [Unknown]
  - Dry skin [Unknown]
  - Staphylococcal infection [Unknown]
  - Decubitus ulcer [Unknown]
  - Skin exfoliation [Unknown]
  - Dry eye [Unknown]

NARRATIVE: CASE EVENT DATE: 20220801
